FAERS Safety Report 8535805 (Version 14)
Quarter: 2013Q2

REPORT INFORMATION
  Report Type: Report from Study
  Country: CA (occurrence: CA)
  Receive Date: 20120430
  Receipt Date: 20130425
  Transmission Date: 20140414
  Serious: Yes (Death, Hospitalization, Other)
  Sender: FDA-Public Use
  Company Number: PHHY2011CA098835

PATIENT
  Age: 80 Year
  Sex: Male

DRUGS (2)
  1. SANDOSTATIN LAR [Suspect]
     Indication: NEUROENDOCRINE CARCINOMA
     Dosage: 30 MG, ONCE A MONTH
     Route: 030
     Dates: start: 20110823
  2. SANDOSTATIN LAR [Suspect]
     Dosage: 30 MG, EVERY 4 WEEKS
     Route: 030
     Dates: end: 20121207

REACTIONS (11)
  - Death [Fatal]
  - Renal failure [Not Recovered/Not Resolved]
  - Cellulitis [Unknown]
  - Epistaxis [Unknown]
  - Blood pressure systolic increased [Unknown]
  - Limb injury [Unknown]
  - Induration [Unknown]
  - Headache [Unknown]
  - Blood glucose increased [Unknown]
  - Movement disorder [Unknown]
  - Oedema [Unknown]
